FAERS Safety Report 14798976 (Version 1)
Quarter: 2018Q2

REPORT INFORMATION
  Report Type: Spontaneous
  Country: US (occurrence: US)
  Receive Date: 20180424
  Receipt Date: 20180424
  Transmission Date: 20180711
  Serious: No
  Sender: FDA-Public Use
  Company Number: US-MYLANLABS-2018M1022562

PATIENT
  Sex: Male

DRUGS (2)
  1. FENTANYL. [Suspect]
     Active Substance: FENTANYL
     Indication: PAIN
     Dosage: 12 ?G, UNK
     Route: 062
  2. FENTANYL. [Suspect]
     Active Substance: FENTANYL
     Dosage: 25 ?G, UNK
     Route: 062

REACTIONS (6)
  - Product quality issue [Unknown]
  - Withdrawal syndrome [Unknown]
  - Drug ineffective [Recovered/Resolved]
  - Product adhesion issue [Unknown]
  - Feeling abnormal [Unknown]
  - Insomnia [Unknown]
